FAERS Safety Report 12486393 (Version 2)
Quarter: 2016Q3

REPORT INFORMATION
  Report Type: Other
  Country: US (occurrence: US)
  Receive Date: 20160621
  Receipt Date: 20160727
  Transmission Date: 20161109
  Serious: Yes (Other)
  Sender: FDA-Public Use
  Company Number: US-BD MEDICAL-1054142

PATIENT
  Sex: Female

DRUGS (1)
  1. BD E-Z SCRUB 107 [Suspect]
     Active Substance: CHLORHEXIDINE GLUCONATE

REACTIONS (1)
  - Hypersensitivity [Recovering/Resolving]
